FAERS Safety Report 4597240-8 (Version None)
Quarter: 2005Q1

REPORT INFORMATION
  Report Type: 
  Country: None (occurrence: None)
  Receive Date: 20050301
  Receipt Date: 20000712
  Transmission Date: 20050727
  Serious: Yes (Death)
  Sender: FDA-Public Use
  Company Number: 1999AP06588

PATIENT
  Age: 84 Year
  Sex: Male

DRUGS (2)
  1. CASODEX [Suspect]
     Indication: PROSTATE CANCER
     Dosage: 150 MG QD PO
     Route: 048
     Dates: start: 19980430
  2. LOSEC [Concomitant]

REACTIONS (4)
  - CEREBRAL HAEMORRHAGE [None]
  - MYELODYSPLASTIC SYNDROME [None]
  - PROSTATE CANCER METASTATIC [None]
  - THROMBOCYTOPENIA [None]
